FAERS Safety Report 15585833 (Version 1)
Quarter: 2018Q4

REPORT INFORMATION
  Report Type: Spontaneous
  Country: US (occurrence: US)
  Receive Date: 20181105
  Receipt Date: 20181105
  Transmission Date: 20190205
  Serious: Yes (Other)
  Sender: FDA-Public Use
  Company Number: US-SA-2018SA299966

PATIENT
  Age: 88 Year
  Sex: Female
  Weight: 86.18 kg

DRUGS (1)
  1. PLAVIX [Suspect]
     Active Substance: CLOPIDOGREL BISULFATE
     Indication: PRODUCT USED FOR UNKNOWN INDICATION
     Dosage: UNK
     Dates: start: 2006

REACTIONS (3)
  - Cerebrovascular accident [Unknown]
  - Blood pressure abnormal [Unknown]
  - Brain neoplasm [Unknown]
